FAERS Safety Report 25417829 (Version 1)
Quarter: 2025Q2

REPORT INFORMATION
  Report Type: Spontaneous
  Country: US (occurrence: None)
  Receive Date: 20250609
  Receipt Date: 20250609
  Transmission Date: 20250717
  Serious: Yes (Disabling)
  Sender: FDA-CTU
  Company Number: None

PATIENT
  Age: 48 Year
  Sex: Female
  Weight: 67.5 kg

DRUGS (1)
  1. LEVOFLOXACIN [Suspect]
     Active Substance: LEVOFLOXACIN
     Indication: Pharyngitis streptococcal
     Dosage: OTHER QUANTITY : 2 TABLET(S);?FREQUENCY : DAILY;?
     Route: 048
     Dates: start: 20250418, end: 20250420

REACTIONS (10)
  - Neuropathy peripheral [None]
  - Asthenia [None]
  - Muscle spasms [None]
  - Myalgia [None]
  - Muscle spasms [None]
  - Tendon pain [None]
  - Burning sensation [None]
  - Tendonitis [None]
  - Impaired work ability [None]
  - Bedridden [None]

NARRATIVE: CASE EVENT DATE: 20250420
